FAERS Safety Report 25473677 (Version 1)
Quarter: 2025Q2

REPORT INFORMATION
  Report Type: Spontaneous
  Country: CN (occurrence: CN)
  Receive Date: 20250624
  Receipt Date: 20250624
  Transmission Date: 20250716
  Serious: Yes (Other)
  Sender: PFIZER
  Company Number: CN-PFIZER INC-PV202500074645

PATIENT
  Age: 11 Year
  Sex: Male

DRUGS (1)
  1. METHOTREXATE SODIUM [Suspect]
     Active Substance: METHOTREXATE SODIUM
     Indication: Symptomatic treatment
     Dosage: 12 MG, 1X/DAY
     Route: 037
     Dates: start: 20250502, end: 20250502

REACTIONS (1)
  - Tremor [Recovering/Resolving]

NARRATIVE: CASE EVENT DATE: 20250509
